FAERS Safety Report 7525776-6 (Version None)
Quarter: 2011Q2

REPORT INFORMATION
  Report Type: 
  Country: None (occurrence: None)
  Receive Date: 20110606
  Receipt Date: 20110523
  Transmission Date: 20111010
  Serious: Yes (Other)
  Sender: FDA-Public Use
  Company Number: PHBS2011TW00496

PATIENT
  Age: 60 Year
  Sex: Female

DRUGS (1)
  1. ZOLEDRONIC ACID [Suspect]
     Dosage: UNK
     Route: 042
     Dates: start: 20110520

REACTIONS (3)
  - BLOOD URINE [None]
  - PYREXIA [None]
  - FATIGUE [None]
